FAERS Safety Report 14106052 (Version 2)
Quarter: 2017Q4

REPORT INFORMATION
  Report Type: Spontaneous
  Country: GB (occurrence: GB)
  Receive Date: 20171019
  Receipt Date: 20171025
  Transmission Date: 20180321
  Serious: Yes (Other)
  Sender: FDA-Public Use
  Company Number: GB-009507513-1710GBR005979

PATIENT
  Age: 17 Year
  Sex: Female

DRUGS (1)
  1. IMPLANON [Suspect]
     Active Substance: ETONOGESTREL
     Dosage: UNK
     Route: 059
     Dates: start: 2014

REACTIONS (4)
  - Idiopathic intracranial hypertension [Unknown]
  - Optic nerve injury [Recovered/Resolved with Sequelae]
  - Ventriculo-peritoneal shunt [Unknown]
  - Scar [Unknown]

NARRATIVE: CASE EVENT DATE: 2015
